FAERS Safety Report 19007757 (Version 1)
Quarter: 2021Q1

REPORT INFORMATION
  Report Type: Spontaneous
  Country: SI (occurrence: SI)
  Receive Date: 20210315
  Receipt Date: 20210315
  Transmission Date: 20210420
  Serious: Yes (Other)
  Sender: FDA-Public Use
  Company Number: NVSC2021SI053469

PATIENT
  Age: 77 Year

DRUGS (18)
  1. COZAAR [Concomitant]
     Active Substance: LOSARTAN POTASSIUM
     Indication: CARDIAC FAILURE
     Dosage: 50 MG, QD
     Route: 065
  2. BYOL [Concomitant]
     Active Substance: BISOPROLOL
     Indication: ATRIAL FIBRILLATION
     Dosage: 5 MG, 0.5 DAY (2X5MG)
     Route: 048
  3. ALDACTONE [Concomitant]
     Active Substance: SPIRONOLACTONE
     Indication: CARDIAC FAILURE
     Dosage: 50 MG, QD (IN THE MORNING)
     Route: 048
  4. COUPET [Concomitant]
     Active Substance: ROSUVASTATIN CALCIUM
     Indication: HYPERLIPIDAEMIA
  5. PREDUCTAL [Concomitant]
     Active Substance: TRIMETAZIDINE DIHYDROCHLORIDE
     Indication: PRODUCT USED FOR UNKNOWN INDICATION
     Dosage: 35 MG, 0.5 DAY
     Route: 065
  6. LEKADOL [Concomitant]
     Active Substance: ACETAMINOPHEN
     Indication: BODY TEMPERATURE INCREASED
     Dosage: 500 MG, AS NECESSERY
     Route: 065
  7. COUPET [Concomitant]
     Active Substance: ROSUVASTATIN CALCIUM
     Indication: PERCUTANEOUS CORONARY INTERVENTION
  8. AMOKSIKLAV [AMOXICILLIN;CLAVULANIC ACID] [Suspect]
     Active Substance: AMOXICILLIN\CLAVULANIC ACID
     Indication: INFECTION
     Dosage: 1 DF, BID
     Route: 048
  9. BYOL [Concomitant]
     Active Substance: BISOPROLOL
     Indication: CARDIAC FAILURE
  10. EDEMID [Concomitant]
     Active Substance: FUROSEMIDE
     Indication: CARDIAC FAILURE
     Dosage: 40 MG, (2 TBL IN THE MORNING + 1 TBL AT 16H)
     Route: 048
  11. NOVOMIX [Concomitant]
     Active Substance: INSULIN ASPART
     Indication: DIABETES MELLITUS
     Dosage: 1DF (ACCORDING TO THE SCHEMEME) 10IU/ML
     Route: 058
  12. ANALGIN [Concomitant]
     Indication: BODY TEMPERATURE INCREASED
     Dosage: 500 MG, AS NECESSARY
     Route: 065
  13. OMNIC OCAS [Concomitant]
     Active Substance: TAMSULOSIN HYDROCHLORIDE
     Indication: ATRIAL FIBRILLATION
  14. MAREVAN [Interacting]
     Active Substance: WARFARIN SODIUM
     Indication: HEART VALVE REPLACEMENT
     Dosage: 3 MG
     Route: 048
  15. MAREVAN [Interacting]
     Active Substance: WARFARIN SODIUM
     Indication: ATRIAL FIBRILLATION
  16. COUPET [Concomitant]
     Active Substance: ROSUVASTATIN CALCIUM
     Indication: ANGIOPLASTY
     Dosage: 20 MG,QD (IN THE EVENING)
     Route: 048
  17. ASPIRIN PROTECT EC [Concomitant]
     Active Substance: ASPIRIN
     Indication: ANGIOPLASTY
     Dosage: 100 MG, QD
     Route: 065
  18. OMNIC OCAS [Concomitant]
     Active Substance: TAMSULOSIN HYDROCHLORIDE
     Indication: BENIGN PROSTATIC HYPERPLASIA
     Dosage: 0.4 MG, QD
     Route: 048

REACTIONS (1)
  - International normalised ratio increased [Recovered/Resolved]
